FAERS Safety Report 25025389 (Version 1)
Quarter: 2025Q1

REPORT INFORMATION
  Report Type: Report from Study
  Country: US (occurrence: US)
  Receive Date: 20250228
  Receipt Date: 20250228
  Transmission Date: 20250408
  Serious: Yes (Hospitalization)
  Sender: GILEAD
  Company Number: US-GILEAD-2025-0704963

PATIENT
  Sex: Female

DRUGS (3)
  1. AZTREONAM LYSINE [Suspect]
     Active Substance: AZTREONAM LYSINE
     Indication: Cystic fibrosis
     Dosage: 1 VIAL (75 MG) THREE TIMES DAILY, 28 DAYS ON 28 DAYS OFF
     Route: 055
  2. AMIKACIN SULFATE [Concomitant]
     Active Substance: AMIKACIN SULFATE
  3. TOBI [Concomitant]
     Active Substance: TOBRAMYCIN

REACTIONS (3)
  - Infection [Unknown]
  - Head injury [Unknown]
  - Fall [Unknown]
